FAERS Safety Report 12390282 (Version 1)
Quarter: 2016Q2

REPORT INFORMATION
  Report Type: Report from Study
  Country: GB (occurrence: GB)
  Receive Date: 20160520
  Receipt Date: 20160520
  Transmission Date: 20160815
  Serious: Yes (Death)
  Sender: FDA-Public Use
  Company Number: GB-PFIZER INC-2016259734

PATIENT
  Age: 38 Year
  Sex: Male

DRUGS (5)
  1. BOSUTINIB [Suspect]
     Active Substance: BOSUTINIB
     Dosage: 500 MG, 1X/DAY
     Dates: start: 20130830, end: 201310
  2. BOSUTINIB [Suspect]
     Active Substance: BOSUTINIB
     Dosage: 300 MG, 1X/DAY
     Dates: start: 20140404, end: 20140411
  3. FLUDARABINE [Concomitant]
     Active Substance: FLUDARABINE PHOSPHATE
     Dosage: UNK, FOR 7 DAYS
     Route: 042
  4. CYTARABINE. [Concomitant]
     Active Substance: CYTARABINE
     Dosage: UNK, FOR 7 DAYS
     Route: 042
  5. BOSUTINIB [Suspect]
     Active Substance: BOSUTINIB
     Dosage: 400 MG, 1X/DAY
     Dates: start: 20140411, end: 20140502

REACTIONS (6)
  - Thrombocytopenia [Fatal]
  - Pain in extremity [Recovered/Resolved]
  - Pyrexia [Recovered/Resolved]
  - Alanine aminotransferase increased [Recovered/Resolved]
  - Liver function test abnormal [Recovered/Resolved]
  - Back pain [Recovered/Resolved]

NARRATIVE: CASE EVENT DATE: 20130830
